FAERS Safety Report 4767319-6 (Version None)
Quarter: 2005Q3

REPORT INFORMATION
  Report Type: 
  Country: None (occurrence: None)
  Receive Date: 20050913
  Receipt Date: 20050831
  Transmission Date: 20060218
  Serious: Yes (Hospitalization)
  Sender: FDA-Public Use
  Company Number: FR-GLAXOSMITHKLINE-B0392723A

PATIENT
  Age: 52 Year
  Sex: Male
  Weight: 70 kg

DRUGS (11)
  1. ONDANSETRON [Suspect]
     Dosage: 8MG CYCLIC
     Route: 048
     Dates: start: 20050720, end: 20050811
  2. TEMODAL [Suspect]
     Indication: GLIOBLASTOMA
     Dosage: 140MG CYCLIC
     Route: 048
     Dates: start: 20050720, end: 20050811
  3. PARAPLATIN [Concomitant]
     Indication: GLIOBLASTOMA
     Route: 042
     Dates: start: 20050719, end: 20050809
  4. DEROXAT [Concomitant]
     Route: 065
  5. GARDENAL [Concomitant]
     Route: 065
  6. CACIT D3 [Concomitant]
     Route: 065
  7. IMOVANE [Concomitant]
     Route: 065
  8. EFFERALGAN CODEINE [Concomitant]
     Route: 065
  9. OMEPRAZOLE [Concomitant]
     Route: 065
  10. LOVENOX [Concomitant]
     Route: 065
  11. SOLU-MEDROL [Concomitant]
     Route: 065

REACTIONS (2)
  - PRURITUS [None]
  - RASH MACULO-PAPULAR [None]
